FAERS Safety Report 9845308 (Version 1)
Quarter: 2014Q1

REPORT INFORMATION
  Report Type: Spontaneous
  Country: US (occurrence: US)
  Receive Date: 20140127
  Receipt Date: 20140127
  Transmission Date: 20141002
  Serious: No
  Sender: FDA-Public Use
  Company Number: US-BAUSCH-BL-2013-001815

PATIENT
  Sex: Female

DRUGS (1)
  1. ZYLET (LOTEPREDNOL ETABONATE 0.5% AND TOBRAMYCIN 0.3% OPHTHALMIC SUSPE [Suspect]
     Indication: PRODUCT USED FOR UNKNOWN INDICATION
     Dosage: 1 DROP IN EACH EYE; FOUR TIMES DAILY; OPHTHALMIC
     Route: 048
     Dates: start: 20130318

REACTIONS (2)
  - Eye irritation [Unknown]
  - Eye pain [Unknown]
